FAERS Safety Report 4330678-2 (Version None)
Quarter: 2004Q2

REPORT INFORMATION
  Report Type: 
  Country: None (occurrence: None)
  Receive Date: 20040402
  Receipt Date: 20040126
  Transmission Date: 20050107
  Serious: Yes (Life-Threatening, Hospitalization)
  Sender: FDA-Public Use
  Company Number: GB-BRISTOL-MYERS SQUIBB COMPANY-12486577

PATIENT
  Age: 69 Year
  Sex: Female

DRUGS (9)
  1. CISPLATIN [Suspect]
     Indication: SMALL CELL LUNG CANCER STAGE UNSPECIFIED
     Dosage: CARBOPLATIN GIVEN AT 3RD CYCLE -22DEC03
     Route: 042
     Dates: start: 20031201, end: 20031201
  2. ETOPOSIDE [Suspect]
     Indication: SMALL CELL LUNG CANCER STAGE UNSPECIFIED
     Dosage: CYCLE 3 - 22DEC03, DOSE REDUCED 20%
     Route: 042
     Dates: start: 20031201
  3. DEXAMETHASONE [Concomitant]
     Indication: PREMEDICATION
     Route: 048
     Dates: start: 20031110, end: 20031110
  4. GRANISETRON [Concomitant]
     Indication: PREMEDICATION
     Route: 048
     Dates: start: 20031201, end: 20031201
  5. DOMPERIDONE [Concomitant]
     Route: 048
  6. OMEPRAZOLE [Concomitant]
     Route: 048
  7. SENNA [Concomitant]
     Dosage: EVERY NIGHT
     Route: 048
  8. CIPROFLOXACIN [Concomitant]
     Indication: PROPHYLAXIS
     Route: 048
  9. ACYCLOVIR [Concomitant]
     Route: 048

REACTIONS (3)
  - NEUTROPENIC SEPSIS [None]
  - PYREXIA [None]
  - THROMBOCYTOPENIA [None]
